FAERS Safety Report 11229196 (Version 1)
Quarter: 2015Q2

REPORT INFORMATION
  Report Type: Spontaneous
  Country: NZ (occurrence: NZ)
  Receive Date: 20150630
  Receipt Date: 20150630
  Transmission Date: 20150821
  Serious: Yes (Other)
  Sender: FDA-Public Use
  Company Number: NZ-PFIZER INC-2015209695

PATIENT
  Age: 29 Year
  Sex: Female

DRUGS (2)
  1. COMBANTRIN [Suspect]
     Active Substance: PYRANTEL PAMOATE
     Indication: HELMINTHIC INFECTION
  2. CHAMPIX [Suspect]
     Active Substance: VARENICLINE TARTRATE
     Dosage: UNK

REACTIONS (7)
  - Feeling hot [Unknown]
  - Pain in extremity [Unknown]
  - Hypophosphataemia [Unknown]
  - Loss of control of legs [Unknown]
  - Hyperhidrosis [Unknown]
  - Muscle spasms [Unknown]
  - Dizziness [Unknown]
